FAERS Safety Report 9375853 (Version 1)
Quarter: 2013Q2

REPORT INFORMATION
  Report Type: Spontaneous
  Country: CO (occurrence: CO)
  Receive Date: 20130628
  Receipt Date: 20130628
  Transmission Date: 20140414
  Serious: Yes (Other)
  Sender: FDA-Public Use
  Company Number: CO-009507513-1306COL009966

PATIENT
  Sex: Female

DRUGS (1)
  1. IMPLANON NXT [Suspect]
     Indication: CONTRACEPTION
     Dosage: 25-70 MCG DAILY, TRIENNIAL
     Route: 059
     Dates: start: 2012

REACTIONS (2)
  - Abortion spontaneous [Recovered/Resolved]
  - Drug ineffective [Unknown]
